FAERS Safety Report 6268190-6 (Version None)
Quarter: 2009Q3

REPORT INFORMATION
  Report Type: 
  Country: None (occurrence: None)
  Receive Date: 20090714
  Receipt Date: 20090714
  Transmission Date: 20100115
  Serious: No
  Sender: FDA-Public Use
  Company Number: None

PATIENT
  Age: 44 Year
  Sex: Female
  Weight: 61.2356 kg

DRUGS (1)
  1. CLINDAMYCIN HCL [Suspect]
     Indication: ORAL SURGERY
     Dosage: 1 CAPSULE -150MG- 3 TIMES A DAY PO
     Route: 048
     Dates: start: 20090709, end: 20090710

REACTIONS (7)
  - AMNESIA [None]
  - DIZZINESS [None]
  - DYSSTASIA [None]
  - FEELING ABNORMAL [None]
  - FEELING DRUNK [None]
  - SPEECH DISORDER [None]
  - THINKING ABNORMAL [None]
